FAERS Safety Report 19716126 (Version 4)
Quarter: 2021Q3

REPORT INFORMATION
  Report Type: Spontaneous
  Country: CA (occurrence: CA)
  Receive Date: 20210819
  Receipt Date: 20210930
  Transmission Date: 20211014
  Serious: Yes (Other)
  Sender: FDA-Public Use
  Company Number: CA-CELLTRION INC.-2021CA003618

PATIENT

DRUGS (11)
  1. IMURAN [Concomitant]
     Active Substance: AZATHIOPRINE
     Dosage: UNK
  2. INFLECTRA [Interacting]
     Active Substance: INFLIXIMAB-DYYB
     Dosage: 5 MG/KG 0,2,6, EVERY 8 WEEKS
     Route: 042
     Dates: start: 20210514, end: 20210514
  3. CELEBREX [Concomitant]
     Active Substance: CELECOXIB
     Indication: COLITIS ULCERATIVE
     Dosage: 1 DF
  4. INFLECTRA [Interacting]
     Active Substance: INFLIXIMAB-DYYB
     Dosage: 5 MG/KG,EVERY 6WEEKS
     Route: 042
     Dates: start: 20210625
  5. INFLECTRA [Suspect]
     Active Substance: INFLIXIMAB-DYYB
     Indication: COLITIS ULCERATIVE
     Dosage: 5 MG/KG 0,2,6, EVERY 8 WEEKS
     Route: 042
     Dates: start: 20210211, end: 20210514
  6. INFLECTRA [Interacting]
     Active Substance: INFLIXIMAB-DYYB
     Dosage: 5 MG/KG,EVERY 6WEEKS
     Route: 042
     Dates: start: 20210806
  7. HYDROCORTISONE. [Concomitant]
     Active Substance: HYDROCORTISONE
     Indication: PREMEDICATION
     Dosage: 100 MG
  8. SOLU?MEDROL [Concomitant]
     Active Substance: METHYLPREDNISOLONE SODIUM SUCCINATE
     Dosage: 1 DF
  9. DIPHENHYDRAMINE. [Concomitant]
     Active Substance: DIPHENHYDRAMINE
     Indication: PREMEDICATION
     Dosage: 50 MG
  10. INFLECTRA [Interacting]
     Active Substance: INFLIXIMAB-DYYB
     Dosage: 5 MG/KG 0,2,6, EVERY 8 WEEKS
     Route: 042
     Dates: start: 20210225
  11. INFLECTRA [Interacting]
     Active Substance: INFLIXIMAB-DYYB
     Dosage: 5 MG/KG 0,2,6, EVERY 8 WEEKS
     Route: 042
     Dates: start: 20210325

REACTIONS (25)
  - Headache [Recovered/Resolved]
  - Pruritus [Not Recovered/Not Resolved]
  - Blood pressure systolic increased [Unknown]
  - Pleural disorder [Unknown]
  - Drug interaction [Unknown]
  - Blood pressure fluctuation [Unknown]
  - Atelectasis [Unknown]
  - Pulmonary mass [Unknown]
  - Hypopnoea [Unknown]
  - Hepatic enzyme increased [Unknown]
  - Drug level decreased [Unknown]
  - Arthralgia [Unknown]
  - Infusion site urticaria [Not Recovered/Not Resolved]
  - Tremor [Not Recovered/Not Resolved]
  - Arthralgia [Not Recovered/Not Resolved]
  - Movement disorder [Unknown]
  - Systemic lupus erythematosus [Unknown]
  - Chest pain [Unknown]
  - Pleuritic pain [Unknown]
  - Rash [Not Recovered/Not Resolved]
  - Off label use [Unknown]
  - Asthenia [Not Recovered/Not Resolved]
  - Infusion site rash [Not Recovered/Not Resolved]
  - Bowel movement irregularity [Unknown]
  - Infusion site pruritus [Not Recovered/Not Resolved]

NARRATIVE: CASE EVENT DATE: 2021
